FAERS Safety Report 10602256 (Version 5)
Quarter: 2014Q4

REPORT INFORMATION
  Report Type: Spontaneous
  Country: US (occurrence: US)
  Receive Date: 20141124
  Receipt Date: 20141222
  Transmission Date: 20150529
  Serious: Yes (Hospitalization)
  Sender: FDA-Public Use
  Company Number: US-ACTELION-A-NJ2014-107301

PATIENT
  Age: 79 Year
  Sex: Female

DRUGS (8)
  1. VENTAVIS [Suspect]
     Active Substance: ILOPROST
     Indication: PULMONARY ARTERIAL HYPERTENSION
     Dosage: 5 MCG, 6-9X/DAY (PURPLE)
     Route: 055
     Dates: start: 20141016
  2. LASIX [Suspect]
     Active Substance: FUROSEMIDE
     Indication: PRODUCT USED FOR UNKNOWN INDICATION
     Dosage: 40 MG, BID
     Route: 048
  3. VENTAVIS [Suspect]
     Active Substance: ILOPROST
     Dosage: 2.5 MCG, 6-9X/DAY
     Route: 055
     Dates: start: 20141207
  4. ADCIRCA [Concomitant]
     Active Substance: TADALAFIL
     Dosage: 40 MG, QD
     Dates: start: 20141003
  5. VENTAVIS [Suspect]
     Active Substance: ILOPROST
     Dosage: UNK, 4 X DAILY (PURPLE)
     Route: 055
     Dates: start: 20141212
  6. ASPIRIN EC [Concomitant]
     Active Substance: ASPIRIN
     Dosage: UNK
     Dates: start: 20130220
  7. VENTAVIS [Suspect]
     Active Substance: ILOPROST
     Dosage: 2.5 MCG, 6-9X/DAY (RED)
     Route: 055
  8. LASIX [Suspect]
     Active Substance: FUROSEMIDE
     Dosage: 80 MG, BID
     Route: 048

REACTIONS (16)
  - Drug dose omission [Unknown]
  - Productive cough [Unknown]
  - Headache [Unknown]
  - Oral pain [Unknown]
  - Hypotension [Unknown]
  - Dyspnoea [Unknown]
  - Glossodynia [Unknown]
  - Dehydration [Unknown]
  - Peripheral swelling [Recovering/Resolving]
  - Fatigue [Unknown]
  - Oedema [Unknown]
  - Dysphonia [Unknown]
  - Urinary tract infection [Recovering/Resolving]
  - Oedema peripheral [Unknown]
  - Flushing [Unknown]
  - Gait disturbance [Recovering/Resolving]

NARRATIVE: CASE EVENT DATE: 20141020
